FAERS Safety Report 5661230-4 (Version None)
Quarter: 2008Q1

REPORT INFORMATION
  Report Type: 
  Country: None (occurrence: None)
  Receive Date: 20080312
  Receipt Date: 20080229
  Transmission Date: 20080703
  Serious: Yes (Death)
  Sender: FDA-Public Use
  Company Number: A0714384A

PATIENT
  Age: 83 Year
  Sex: Female
  Weight: 52 kg

DRUGS (3)
  1. SERETIDE [Suspect]
     Indication: PULMONARY FIBROSIS
     Route: 055
     Dates: start: 20070829, end: 20080207
  2. DEFLAZACORT [Concomitant]
     Dates: start: 20070829, end: 20071229
  3. PREDNISOLONE [Concomitant]
     Dates: start: 20080110, end: 20080210

REACTIONS (1)
  - DEATH [None]
